FAERS Safety Report 23335500 (Version 3)
Quarter: 2024Q3

REPORT INFORMATION
  Report Type: Report from Study
  Country: US (occurrence: US)
  Receive Date: 20231225
  Receipt Date: 20240826
  Transmission Date: 20241017
  Serious: Yes (Disabling, Other)
  Sender: AMGEN
  Company Number: US-HORIZON THERAPEUTICS-HZN-2021-009230

PATIENT
  Age: 61 Year
  Sex: Male
  Weight: 130.2 kg

DRUGS (46)
  1. TEPEZZA [Suspect]
     Active Substance: TEPROTUMUMAB-TRBW
     Indication: Endocrine ophthalmopathy
     Dosage: 10 MILLIGRAM/KILOGRAM, Q3WK (1312 MILLIGRAM) FIRST INFUSION.
     Route: 042
     Dates: start: 20211124
  2. TEPEZZA [Suspect]
     Active Substance: TEPROTUMUMAB-TRBW
     Indication: Graves^ disease
     Dosage: 20 MILLIGRAM/KILOGRAM, Q3WK (2626 MILLIGRAM) SECOND INFUSION.
     Route: 042
     Dates: start: 20211215
  3. TEPEZZA [Suspect]
     Active Substance: TEPROTUMUMAB-TRBW
     Dosage: 20 MILLIGRAM/KILOGRAM, Q3WK (2688 MILLIGRAM) THIRD INFUSION
     Route: 042
     Dates: start: 20220105
  4. TEPEZZA [Suspect]
     Active Substance: TEPROTUMUMAB-TRBW
     Dosage: 20 MILLIGRAM/KILOGRAM, Q3WK (2710 MILLIGRAM) FOURTH INFUSION
     Route: 042
     Dates: start: 20220126
  5. TEPEZZA [Suspect]
     Active Substance: TEPROTUMUMAB-TRBW
     Dosage: 20 MILLIGRAM/KILOGRAM, Q3WK (2668 MILLIGRAM) FIFTH INFUSION
     Route: 042
     Dates: start: 20220216
  6. TEPEZZA [Suspect]
     Active Substance: TEPROTUMUMAB-TRBW
     Dosage: 20 MILLIGRAM/KILOGRAM, Q3WK  (2666 MILLIGRAM) SIXTH INFUSION
     Route: 042
     Dates: start: 20220309
  7. TEPEZZA [Suspect]
     Active Substance: TEPROTUMUMAB-TRBW
     Dosage: 20 MILLIGRAM/KILOGRAM, Q3WK  (2632 MILLIGRAM) SEVENTH INFUSION
     Route: 042
     Dates: start: 20220330
  8. TEPEZZA [Suspect]
     Active Substance: TEPROTUMUMAB-TRBW
     Dosage: 20 MILLIGRAM/KILOGRAM, Q3WK  (2604 MILLIGRAM) EIGHTH INFUSION
     Route: 042
     Dates: start: 20220420
  9. AFRIN [Concomitant]
     Active Substance: OXYMETAZOLINE
     Dosage: UNK, BID
  10. BACTROBAN [Concomitant]
     Active Substance: MUPIROCIN CALCIUM
     Dosage: UNK, QD
     Route: 061
  11. BACTROBAN [Concomitant]
     Active Substance: MUPIROCIN CALCIUM
     Dosage: UNK, TID
     Route: 061
  12. WELLBUTRIN [Concomitant]
     Active Substance: BUPROPION HYDROCHLORIDE
     Dosage: 100 MILLIGRAM
  13. WELLBUTRIN [Concomitant]
     Active Substance: BUPROPION HYDROCHLORIDE
     Dosage: 150 MILLIGRAM
     Dates: start: 20160627, end: 20230510
  14. WELLBUTRIN [Concomitant]
     Active Substance: BUPROPION HYDROCHLORIDE
     Dosage: 300 MILLIGRAM, QD
     Route: 048
     Dates: start: 20211009
  15. RESTASIS [Concomitant]
     Active Substance: CYCLOSPORINE
     Dosage: UNK UNK, BID
     Route: 047
  16. PROSCAR [Concomitant]
     Active Substance: FINASTERIDE
     Dosage: 5 MILLIGRAM, QD
     Route: 048
  17. DITROPAN [Concomitant]
     Active Substance: OXYBUTYNIN CHLORIDE
     Dosage: 5 MILLIGRAM, QD
     Route: 048
  18. ELAVIL [Concomitant]
     Active Substance: AMITRIPTYLINE HYDROCHLORIDE
     Dosage: 10 MILLIGRAM, QD
     Route: 048
  19. BIKTARVY [Concomitant]
     Active Substance: BICTEGRAVIR SODIUM\EMTRICITABINE\TENOFOVIR ALAFENAMIDE FUMARATE
     Dosage: UNK UNK, QD
     Route: 048
  20. SYNTHROID [Concomitant]
     Active Substance: LEVOTHYROXINE SODIUM
     Dosage: 150 MICROGRAM
     Dates: start: 20160603
  21. SYNTHROID [Concomitant]
     Active Substance: LEVOTHYROXINE SODIUM
     Dosage: 175 MICROGRAM
     Dates: start: 20220207, end: 20230510
  22. ALPHA LIPOIC ACID [Concomitant]
     Active Substance: .ALPHA.-LIPOIC ACID
     Dosage: 100 MILLIGRAM, BID
     Route: 048
  23. WELLBUTRIN XL [Concomitant]
     Active Substance: BUPROPION HYDROCHLORIDE
  24. CYANOCOBALAMIN [Concomitant]
     Active Substance: CYANOCOBALAMIN
     Dosage: 1000 MICROGRAM PER MILLIGRAM
     Dates: end: 20230510
  25. MYRBETRIQ [Concomitant]
     Active Substance: MIRABEGRON
     Dosage: 50 MILLIGRAM
     Dates: start: 20210806, end: 20230510
  26. SINGULAIR [Concomitant]
     Active Substance: MONTELUKAST SODIUM
     Dosage: 10 MILLIGRAM, QD
     Route: 048
     Dates: start: 20200804, end: 20230510
  27. Depade [Concomitant]
     Dosage: 50 MILLIGRAM
     Route: 048
     Dates: start: 20210806
  28. MYCOLOG-II [Concomitant]
     Active Substance: NYSTATIN\TRIAMCINOLONE ACETONIDE
     Dosage: UNK
     Route: 061
     Dates: end: 20230510
  29. LYRICA [Concomitant]
     Active Substance: PREGABALIN
     Dosage: 75 MILLIGRAM, BID
     Route: 048
  30. RAPAFLO [Concomitant]
     Active Substance: SILODOSIN
     Dosage: 8 MILLIGRAM
     Dates: start: 20210806, end: 20230510
  31. KENALOG [Concomitant]
     Active Substance: TRIAMCINOLONE ACETONIDE
     Dosage: UNK
     Route: 061
     Dates: start: 20200625
  32. ABILIFY [Concomitant]
     Active Substance: ARIPIPRAZOLE
     Dosage: 10 MILLIGRAM, QD
     Route: 048
  33. NEURONTIN [Concomitant]
     Active Substance: GABAPENTIN
     Dosage: 600 MILLIGRAM
     Route: 048
     Dates: start: 20150612, end: 20230510
  34. DESYREL [Concomitant]
     Active Substance: TRAZODONE HYDROCHLORIDE
     Dosage: 100 MILLIGRAM, QD
     Route: 048
     Dates: start: 20150612
  35. DIOVAN [Concomitant]
     Active Substance: VALSARTAN
     Dosage: 160 MILLIGRAM, QD
     Route: 048
     Dates: start: 20150617
  36. TESTOSTERONE [Concomitant]
     Active Substance: TESTOSTERONE
     Dosage: 200 MILLIGRAM PER MILLILITRE
     Route: 030
     Dates: start: 20150730
  37. SHINGRIX [Concomitant]
     Active Substance: RECOMBINANT VARICELLA ZOSTER VIRUS (VZV) GLYCOPROTEIN E
     Dosage: 50 MICROGRAM
     Route: 030
     Dates: end: 20230510
  38. COMPLERA [Concomitant]
     Active Substance: EMTRICITABINE\RILPIVIRINE HYDROCHLORIDE\TENOFOVIR DISOPROXIL FUMARATE
     Dosage: UNK UNK, QD
     Route: 048
     Dates: start: 20150615, end: 20230510
  39. PAZEO [Concomitant]
     Active Substance: OLOPATADINE HYDROCHLORIDE
     Dosage: UNK UNK, QD
     Route: 047
     Dates: start: 20160930, end: 20220511
  40. PERCOCET [Concomitant]
     Active Substance: ACETAMINOPHEN\OXYCODONE HYDROCHLORIDE
     Dosage: UNK UNK, Q6H
     Route: 048
     Dates: start: 20210604, end: 20230510
  41. VITAMIN D [Concomitant]
     Active Substance: VITAMIN D NOS
     Dosage: UNK
     Route: 048
     Dates: end: 20230510
  42. OCUVITE [Concomitant]
     Active Substance: VITAMINS
     Dosage: UNK
     Route: 048
     Dates: end: 20230510
  43. FLUCELVAX QUADRIVALENT 2017/2018 (INFLUENZA A VIRUS A/DARWIN/11/2021 ( [Concomitant]
     Active Substance: INFLUENZA A VIRUS A/DARWIN/11/2021 (H3N2) ANTIGEN (MDCK CELL DERIVED, PROPIOLACTONE INACTIVATED)\INF
     Dosage: 60 MICROGRAM (15 MCG X 4)/0.5 ML
     Route: 030
     Dates: end: 20230510
  44. TYLENOL [Concomitant]
     Active Substance: ACETAMINOPHEN
     Dosage: 650 MILLIGRAM
     Route: 048
  45. BENADRYL [Concomitant]
     Active Substance: DIPHENHYDRAMINE HYDROCHLORIDE
     Dosage: 25 MILLIGRAM
     Route: 048
  46. SOLU-MEDROL [Concomitant]
     Active Substance: METHYLPREDNISOLONE SODIUM SUCCINATE
     Dosage: 125 MILLIGRAM
     Route: 042

REACTIONS (42)
  - Deafness bilateral [Not Recovered/Not Resolved]
  - Physical disability [Not Recovered/Not Resolved]
  - Paralytic lagophthalmos [Unknown]
  - Chronic kidney disease [Unknown]
  - Hypothyroidism [Unknown]
  - Palpitations [Recovered/Resolved]
  - Parosmia [Not Recovered/Not Resolved]
  - Ageusia [Recovering/Resolving]
  - Anosmia [Recovering/Resolving]
  - Injury [Not Recovered/Not Resolved]
  - Pain [Not Recovered/Not Resolved]
  - Anxiety [Not Recovered/Not Resolved]
  - Concomitant disease aggravated [Not Recovered/Not Resolved]
  - Impaired quality of life [Not Recovered/Not Resolved]
  - Emotional distress [Not Recovered/Not Resolved]
  - Economic problem [Not Recovered/Not Resolved]
  - Product quality issue [Unknown]
  - Dry skin [Unknown]
  - Rhinitis [Unknown]
  - Vitamin B12 deficiency [Unknown]
  - Blood testosterone decreased [Unknown]
  - Nasal septum deviation [Unknown]
  - Diabetic nephropathy [Unknown]
  - Dysgeusia [Not Recovered/Not Resolved]
  - Ear discomfort [Not Recovered/Not Resolved]
  - Blood glucose increased [Unknown]
  - Dry eye [Unknown]
  - Nasal turbinate hypertrophy [Unknown]
  - Disorder of orbit [Unknown]
  - Hypertonic bladder [Unknown]
  - Eyelid retraction [Unknown]
  - Nasal obstruction [Unknown]
  - Ocular discomfort [Unknown]
  - Hypoaesthesia [Unknown]
  - Paraesthesia [Unknown]
  - Eye discharge [Unknown]
  - Eye pain [Unknown]
  - Nasal congestion [Unknown]
  - Peripheral swelling [Unknown]
  - Dyspepsia [Unknown]
  - Urinary hesitation [Unknown]
  - Arthralgia [Unknown]

NARRATIVE: CASE EVENT DATE: 20211124
